FAERS Safety Report 8834465 (Version 1)
Quarter: 2012Q4

REPORT INFORMATION
  Report Type: Spontaneous
  Country: US (occurrence: None)
  Receive Date: 20121010
  Receipt Date: 20121010
  Transmission Date: 20130627
  Serious: Yes (Other)
  Sender: FDA-Public Use
  Company Number: None

PATIENT
  Age: 25 Year
  Sex: Female
  Weight: 90.72 kg

DRUGS (1)
  1. MIRENA [Suspect]
     Dosage: other
     Dates: start: 20050101, end: 20090801

REACTIONS (5)
  - Muscle spasms [None]
  - Haemorrhage [None]
  - Discomfort [None]
  - Colon cancer [None]
  - Uterine perforation [None]
